FAERS Safety Report 25633692 (Version 1)
Quarter: 2025Q3

REPORT INFORMATION
  Report Type: Spontaneous
  Country: EU (occurrence: EU)
  Receive Date: 20250801
  Receipt Date: 20250801
  Transmission Date: 20251020
  Serious: Yes (Other)
  Sender: JOHNSON AND JOHNSON
  Company Number: EU-JNJFOC-20250738969

PATIENT
  Sex: Female

DRUGS (2)
  1. HALDOL [Suspect]
     Active Substance: HALOPERIDOL
     Indication: Wrong patient
     Route: 048
     Dates: start: 20250623, end: 20250623
  2. MELATONIN [Suspect]
     Active Substance: MELATONIN
     Indication: Wrong patient
     Dates: start: 20250623, end: 20250623

REACTIONS (3)
  - Somnolence [Recovered/Resolved]
  - Extrapyramidal disorder [Recovered/Resolved]
  - Wrong patient [Recovered/Resolved]

NARRATIVE: CASE EVENT DATE: 20250623
